FAERS Safety Report 8887697 (Version 4)
Quarter: 2013Q3

REPORT INFORMATION
  Report Type: Report from Study
  Country: JP (occurrence: JP)
  Receive Date: 20121106
  Receipt Date: 20130723
  Transmission Date: 20140515
  Serious: Yes (Other)
  Sender: FDA-Public Use
  Company Number: JP-VERTEX PHARMACEUTICAL INC.-2012-024021

PATIENT
  Age: 64 Year
  Sex: Female

DRUGS (14)
  1. VX-950 (TELAPREVIR) [Suspect]
     Indication: CHRONIC HEPATITIS C
     Dosage: 1500 MG, QD
     Route: 048
     Dates: start: 20120726, end: 20120912
  2. RIBAVIRIN [Suspect]
     Indication: CHRONIC HEPATITIS C
     Dosage: 800 MG, QD
     Route: 048
     Dates: start: 20120726, end: 20120822
  3. RIBAVIRIN [Suspect]
     Dosage: 400 MG, QD
     Route: 048
     Dates: start: 20120823, end: 20120829
  4. RIBAVIRIN [Suspect]
     Dosage: 200 MG, QD
     Route: 048
     Dates: start: 20120830, end: 20120912
  5. PEGINTRON [Suspect]
     Indication: CHRONIC HEPATITIS C
     Dosage: 1.5 ?G/KG, QW
     Route: 058
     Dates: start: 20120726, end: 20120830
  6. PEGINTRON [Suspect]
     Dosage: 1.3 ?G/KG, QW
     Route: 058
     Dates: start: 20120906, end: 20130103
  7. GASTER D [Concomitant]
     Dosage: 20 MG, QD/PRN
     Route: 048
     Dates: start: 20120726
  8. GASTER D [Concomitant]
     Dosage: 20 MG, QD
     Route: 048
     Dates: start: 20120726
  9. MAGMITT [Concomitant]
     Dosage: 990 MG, QD
     Route: 048
     Dates: start: 20120802, end: 20120811
  10. MIYA BM [Concomitant]
     Dosage: 60 MG, QD
     Route: 048
     Dates: start: 20120802, end: 20120816
  11. MAGNESIUM OXIDE [Concomitant]
     Dosage: 1.5 G, QD
     Route: 048
     Dates: start: 20120823
  12. MEDICON [Concomitant]
     Dosage: 45 MG, QD
     Route: 048
     Dates: start: 20121011, end: 20121024
  13. KENALOG [Concomitant]
     Dosage: UNK, PRN
     Route: 061
     Dates: start: 20121129
  14. CALONAL [Concomitant]
     Dosage: 1200 MG, QD/PRN
     Route: 048
     Dates: start: 20120726, end: 20120823

REACTIONS (1)
  - Retinopathy [Recovered/Resolved]
